FAERS Safety Report 12879930 (Version 4)
Quarter: 2016Q4

REPORT INFORMATION
  Report Type: Spontaneous
  Country: US (occurrence: US)
  Receive Date: 20161025
  Receipt Date: 20161128
  Transmission Date: 20170207
  Serious: Yes (Hospitalization, Other)
  Sender: FDA-Public Use
  Company Number: US-PFIZER INC-2016460713

PATIENT
  Age: 55 Year
  Sex: Male
  Weight: 91 kg

DRUGS (19)
  1. LOVENOX [Concomitant]
     Active Substance: ENOXAPARIN SODIUM
     Dosage: UNK
  2. OXYCODONE [Concomitant]
     Active Substance: OXYCODONE
     Dosage: UNK
  3. TUMS [Concomitant]
     Active Substance: CALCIUM CARBONATE
     Dosage: UNK
  4. VITAMIN D [Concomitant]
     Active Substance: CHOLECALCIFEROL
     Dosage: UNK
  5. NICODERM CQ [Concomitant]
     Active Substance: NICOTINE
     Dosage: UNK
  6. VITAMIN K2 [Concomitant]
     Active Substance: MENAQUINONE 6
     Dosage: UNK
  7. OXYCONTIN [Concomitant]
     Active Substance: OXYCODONE HYDROCHLORIDE
     Dosage: UNK
  8. FLOMAX [Concomitant]
     Active Substance: TAMSULOSIN HYDROCHLORIDE
     Dosage: UNK
  9. MEGACE [Concomitant]
     Active Substance: MEGESTROL ACETATE
     Dosage: UNK
  10. GAS-X [Concomitant]
     Active Substance: DIMETHICONE
     Dosage: UNK
  11. VITAMIN C [Concomitant]
     Active Substance: ASCORBIC ACID
     Dosage: UNK
  12. VITAMIN E [Concomitant]
     Active Substance: .ALPHA.-TOCOPHEROL
     Dosage: UNK
  13. METOCLOPRAMIDE. [Concomitant]
     Active Substance: METOCLOPRAMIDE
     Dosage: UNK
  14. SUTENT [Suspect]
     Active Substance: SUNITINIB MALATE
     Indication: RENAL CANCER METASTATIC
     Dosage: 50 MG, CYCLIC (2 WEEKS ON/1 WEEK OFF)
     Dates: start: 20161004, end: 20161116
  15. TENORMIN [Concomitant]
     Active Substance: ATENOLOL
     Dosage: UNK
  16. STOOL SOFTENER (DOCUSATE CALCIUM) [Concomitant]
     Active Substance: DOCUSATE CALCIUM
     Dosage: UNK
  17. SUTENT [Suspect]
     Active Substance: SUNITINIB MALATE
     Dosage: 50 MG, UNK
  18. PRILOSEC [Concomitant]
     Active Substance: OMEPRAZOLE MAGNESIUM
     Dosage: UNK
  19. MARINOL /00003301/ [Concomitant]
     Dosage: UNK

REACTIONS (24)
  - Blood pressure decreased [Unknown]
  - Dyspnoea [Recovering/Resolving]
  - Dyspepsia [Unknown]
  - Cardiac disorder [Unknown]
  - Thrombosis [Unknown]
  - Muscle atrophy [Unknown]
  - Eructation [Unknown]
  - Parosmia [Unknown]
  - Weight decreased [Unknown]
  - Gait disturbance [Unknown]
  - Constipation [Recovered/Resolved]
  - Malaise [Unknown]
  - Nausea [Unknown]
  - Abdominal distension [Unknown]
  - Sensation of foreign body [Unknown]
  - Pulmonary thrombosis [Unknown]
  - Dysgeusia [Unknown]
  - Heart rate increased [Unknown]
  - Tumour embolism [Unknown]
  - Haemoglobin decreased [Unknown]
  - Off label use [Unknown]
  - Fatigue [Unknown]
  - Decreased appetite [Unknown]
  - Dry mouth [Unknown]

NARRATIVE: CASE EVENT DATE: 20161116
